FAERS Safety Report 9455256 (Version 2)
Quarter: 2013Q4

REPORT INFORMATION
  Report Type: Spontaneous
  Country: US (occurrence: US)
  Receive Date: 20130813
  Receipt Date: 20131008
  Transmission Date: 20140711
  Serious: No
  Sender: FDA-Public Use
  Company Number: US-JNJFOC-20130717509

PATIENT
  Age: 64 Year
  Sex: Male

DRUGS (4)
  1. DURAGESIC [Suspect]
     Indication: PAIN
     Dosage: 12.5 + 25
     Route: 062
  2. HYDROCODONE [Concomitant]
     Indication: PAIN
     Route: 048
     Dates: start: 2003
  3. METHOCARBAMOL [Concomitant]
     Indication: MUSCLE SPASMS
     Route: 048
     Dates: start: 2003
  4. RANITIDINE [Concomitant]
     Indication: GASTROOESOPHAGEAL REFLUX DISEASE
     Route: 065

REACTIONS (4)
  - Drug dose omission [Not Recovered/Not Resolved]
  - Withdrawal syndrome [Not Recovered/Not Resolved]
  - Product quality issue [Recovered/Resolved]
  - Device leakage [Unknown]
